FAERS Safety Report 6170670-9 (Version None)
Quarter: 2009Q2

REPORT INFORMATION
  Report Type: 
  Country: None (occurrence: None)
  Receive Date: 20090428
  Receipt Date: 20090421
  Transmission Date: 20091009
  Serious: Yes (Hospitalization)
  Sender: FDA-Public Use
  Company Number: US-ASTRAZENECA-2007UW26868

PATIENT
  Age: 24689 Day
  Sex: Male

DRUGS (60)
  1. ATACAND [Suspect]
     Route: 048
  2. HYDROCHLOROTHIAZIDE [Suspect]
  3. AZD6140 [Suspect]
     Indication: ACUTE CORONARY SYNDROME
     Route: 048
     Dates: start: 20070301
  4. POLYSACCHARIDE IRON [Concomitant]
     Dates: start: 20070730
  5. HYDROCODONE WITH APAP [Concomitant]
     Dates: start: 20070728, end: 20070731
  6. HYDROXYZINE [Concomitant]
     Dates: start: 20070728, end: 20070731
  7. METHYLPREDNISOLONE ACETATE [Concomitant]
     Dates: start: 20070622
  8. METHYLPREDNISOLONE ACETATE [Concomitant]
     Dates: start: 20070720, end: 20070722
  9. METHYLPREDNISOLONE ACETATE [Concomitant]
     Dates: start: 20070726, end: 20070726
  10. NYSTATIN [Concomitant]
     Dates: start: 20070723, end: 20070726
  11. KAYEXALATE [Concomitant]
     Dates: start: 20070731, end: 20070731
  12. LEVOFLOXACIN [Concomitant]
     Dates: start: 20070728
  13. LEVOFLOXACIN [Concomitant]
     Dates: start: 20070720, end: 20070728
  14. ACETAMINOPHEN [Concomitant]
  15. ALPRAZOLAM [Concomitant]
     Dates: start: 20070721, end: 20070722
  16. BENZONATATE [Concomitant]
     Dates: start: 20070720, end: 20070726
  17. BISACODYL [Concomitant]
     Dates: start: 20070728, end: 20070728
  18. DEXAMETHASONE 4MG TAB [Concomitant]
     Dates: start: 20070727, end: 20070730
  19. DILTIAZEM HCL [Concomitant]
     Dates: start: 20070726, end: 20070730
  20. LACTOBACILLUS [Concomitant]
     Dates: start: 20070622
  21. ETOMIDATE [Concomitant]
     Dates: start: 20070302, end: 20070304
  22. GUAIFENESIN [Concomitant]
     Dates: start: 20070621
  23. AMPICILLIN [Concomitant]
     Dates: start: 20070625, end: 20070625
  24. MONTELUKAST [Concomitant]
     Dates: start: 20070626
  25. CEFTRIAXONE [Concomitant]
     Dates: start: 20070621, end: 20070625
  26. SENOKOT [Concomitant]
     Dates: start: 20070729, end: 20070731
  27. PROVENTIL [Concomitant]
  28. OMNICEF [Concomitant]
     Dates: start: 20070625
  29. MORPHINE [Concomitant]
     Dates: start: 20070228, end: 20070306
  30. MORPHINE [Concomitant]
     Dates: start: 20070728, end: 20070729
  31. MUCINEX [Concomitant]
  32. ADVAIR HFA [Concomitant]
  33. NITROGLYCERIN [Concomitant]
     Dates: start: 20070228, end: 20070303
  34. PREDNISONE TAB [Concomitant]
     Dates: start: 20070724, end: 20070727
  35. LASIX [Concomitant]
     Dates: start: 20070301, end: 20070301
  36. BENADRYL [Concomitant]
     Dates: start: 20070226, end: 20070301
  37. LIPITOR [Concomitant]
  38. FLUTICASONE [Concomitant]
     Dates: start: 20070621
  39. GABAPENTIN [Concomitant]
     Dates: start: 20070716, end: 20070731
  40. LINEZOLID [Concomitant]
     Dates: start: 20070721, end: 20070723
  41. AMOXICILLIN [Concomitant]
     Dates: start: 20070402, end: 20070412
  42. SPIRONOLACTONE [Concomitant]
     Dates: start: 20070718, end: 20070726
  43. ZOLPIDEM TARTRATE [Concomitant]
     Dates: start: 20070301, end: 20070310
  44. ZOLPIDEM TARTRATE [Concomitant]
     Dates: start: 20070622
  45. XANAX [Concomitant]
     Dates: start: 20070301, end: 20070301
  46. COMBIVENT [Concomitant]
  47. XOPENEX  SVN [Concomitant]
  48. ATORVASTATIN [Concomitant]
     Dates: start: 20070301, end: 20070306
  49. FLUNISOLIDE [Concomitant]
     Dates: start: 20070621
  50. SPIRIVA [Concomitant]
     Dates: start: 20070402
  51. LEVALBUTEROL HCL [Concomitant]
     Dates: start: 20070621
  52. AZITHROMYCIN [Concomitant]
     Dates: start: 20070622
  53. AMIODARONE [Concomitant]
  54. THEOPHYLLINE [Concomitant]
     Dates: start: 20070723, end: 20070723
  55. ASPIRIN [Concomitant]
     Dates: end: 20070302
  56. WARFARIN [Concomitant]
     Dates: start: 20070306, end: 20070308
  57. WARFARIN [Concomitant]
     Dates: start: 20070309, end: 20070626
  58. LOVENOX [Concomitant]
     Dates: start: 20070302, end: 20070306
  59. CLOPIDOGREL [Concomitant]
     Dates: start: 20070301, end: 20070301
  60. HEPARIN [Concomitant]
     Dates: start: 20070228, end: 20070301

REACTIONS (1)
  - ORTHOSTATIC HYPOTENSION [None]
